FAERS Safety Report 23883815 (Version 2)
Quarter: 2024Q2

REPORT INFORMATION
  Report Type: Spontaneous
  Country: CA (occurrence: CA)
  Receive Date: 20240522
  Receipt Date: 20240603
  Transmission Date: 20240716
  Serious: Yes (Hospitalization, Other)
  Sender: FDA-Public Use
  Company Number: CA-BRISTOL-MYERS SQUIBB COMPANY-2024-076320

PATIENT
  Age: 5 Decade
  Sex: Male

DRUGS (4)
  1. OPDIVO [Suspect]
     Active Substance: NIVOLUMAB
     Indication: Non-small cell lung cancer metastatic
     Dates: start: 20231121
  2. YERVOY [Suspect]
     Active Substance: IPILIMUMAB
     Indication: Non-small cell lung cancer metastatic
     Dates: start: 20231121
  3. CARBOPLATIN [Suspect]
     Active Substance: CARBOPLATIN
     Indication: Non-small cell lung cancer metastatic
     Dates: start: 20231121
  4. PACLITAXEL [Suspect]
     Active Substance: PACLITAXEL
     Indication: Non-small cell lung cancer metastatic
     Dates: start: 20231121

REACTIONS (13)
  - Asthenia [Unknown]
  - Confusional state [Unknown]
  - Gait inability [Unknown]
  - Hypoxia [Unknown]
  - Hypotension [Unknown]
  - Pneumonia [Recovering/Resolving]
  - Delirium [Unknown]
  - Exfoliative rash [Recovering/Resolving]
  - Skin exfoliation [Recovering/Resolving]
  - Pain [Unknown]
  - Dyspnoea [Unknown]
  - Dyspnoea exertional [Recovering/Resolving]
  - Cough [Unknown]

NARRATIVE: CASE EVENT DATE: 20231201
